FAERS Safety Report 5725089-9 (Version None)
Quarter: 2008Q2

REPORT INFORMATION
  Report Type: 
  Country: None (occurrence: None)
  Receive Date: 20080501
  Receipt Date: 20080424
  Transmission Date: 20081010
  Serious: Yes (Death, Life-Threatening, Hospitalization, Other)
  Sender: FDA-Public Use
  Company Number: VE-BAYER-200813358LA

PATIENT
  Age: 59 Year
  Sex: Female

DRUGS (3)
  1. NEXAVAR [Suspect]
     Indication: RENAL CELL CARCINOMA STAGE IV
     Dosage: TOTAL DAILY DOSE: 800 MG  UNIT DOSE: 400 MG
     Route: 048
     Dates: start: 20071001, end: 20080408
  2. ZOLDRIA [Concomitant]
     Indication: METASTASES TO BONE
     Route: 048
  3. BISPHOSPHONATE [Concomitant]
     Indication: METASTASES TO BONE
     Route: 065

REACTIONS (7)
  - ABDOMINAL PAIN [None]
  - ACUTE RESPIRATORY FAILURE [None]
  - COMA [None]
  - DEHYDRATION [None]
  - DIARRHOEA [None]
  - DYSPNOEA [None]
  - INTESTINAL OBSTRUCTION [None]
